FAERS Safety Report 6829849-2 (Version None)
Quarter: 2010Q3

REPORT INFORMATION
  Report Type: 
  Country: None (occurrence: None)
  Receive Date: 20100710
  Receipt Date: 20100628
  Transmission Date: 20110219
  Serious: Yes (Hospitalization)
  Sender: FDA-Public Use
  Company Number: US-ELI_LILLY_AND_COMPANY-US201006007856

PATIENT
  Age: 69 Year
  Sex: Female

DRUGS (8)
  1. FORTEO [Suspect]
     Indication: OSTEOPOROSIS
  2. SYNTHROID [Concomitant]
  3. DITROPAN [Concomitant]
  4. PRILOSEC [Concomitant]
  5. ADVAIR DISKUS 100/50 [Concomitant]
  6. PRAVASTATIN [Concomitant]
  7. METOPROLOL [Concomitant]
  8. ASACOL [Concomitant]

REACTIONS (1)
  - COLON OPERATION [None]
